FAERS Safety Report 7828324-6 (Version None)
Quarter: 2011Q4

REPORT INFORMATION
  Report Type: 
  Country: None (occurrence: None)
  Receive Date: 20111020
  Receipt Date: 20111017
  Transmission Date: 20120403
  Serious: Yes (Hospitalization, Other)
  Sender: FDA-Public Use
  Company Number: US-AMGEN-USASP2011053546

PATIENT
  Age: 54 Year
  Sex: Female

DRUGS (1)
  1. ENBREL [Suspect]
     Indication: RHEUMATOID ARTHRITIS
     Dosage: 50 MG, QWK
     Dates: start: 20030901, end: 20111014

REACTIONS (5)
  - DIZZINESS [None]
  - HEADACHE [None]
  - NEOPLASM MALIGNANT [None]
  - PERICARDITIS [None]
  - GASTROINTESTINAL INFECTION [None]
